FAERS Safety Report 8088633-5 (Version None)
Quarter: 2012Q1

REPORT INFORMATION
  Report Type: 
  Country: None (occurrence: None)
  Receive Date: 20120128
  Receipt Date: 20110429
  Transmission Date: 20120608
  Serious: No
  Sender: FDA-Public Use
  Company Number: US-ABBOTT-11P-163-0723398-00

PATIENT
  Sex: Male
  Weight: 40.406 kg

DRUGS (11)
  1. HUMIRA [Suspect]
     Indication: CROHN'S DISEASE
     Route: 058
     Dates: start: 20100101
  2. HUMIRA [Suspect]
     Route: 058
     Dates: start: 20091201, end: 20100101
  3. IRON [Concomitant]
     Indication: PRODUCT USED FOR UNKNOWN INDICATION
  4. ZYRTEC [Concomitant]
     Indication: SEASONAL ALLERGY
  5. NALTREXONE [Concomitant]
     Indication: PRODUCT USED FOR UNKNOWN INDICATION
  6. NUTROPIN [Concomitant]
     Indication: DWARFISM
     Route: 058
     Dates: start: 20100901
  7. HUMIRA [Suspect]
     Route: 058
     Dates: start: 20090101, end: 20090101
  8. EMLA [Concomitant]
     Indication: INJECTION SITE PAIN
     Route: 061
  9. HUMIRA [Suspect]
     Indication: CROHN'S DISEASE
     Route: 058
     Dates: start: 20090101, end: 20091201
  10. VITAMIN D [Concomitant]
     Indication: PRODUCT USED FOR UNKNOWN INDICATION
  11. MULTI-VITAMIN [Concomitant]
     Indication: PRODUCT USED FOR UNKNOWN INDICATION

REACTIONS (3)
  - HAEMATOCHEZIA [None]
  - INJECTION SITE PAIN [None]
  - DRUG INEFFECTIVE [None]
